FAERS Safety Report 13918081 (Version 2)
Quarter: 2017Q3

REPORT INFORMATION
  Report Type: Spontaneous
  Country: AT (occurrence: AT)
  Receive Date: 20170829
  Receipt Date: 20170906
  Transmission Date: 20171127
  Serious: Yes (Hospitalization, Other)
  Sender: FDA-Public Use
  Company Number: AT-BAYER-2017-160658

PATIENT
  Age: 66 Year
  Sex: Male
  Weight: 95 kg

DRUGS (1)
  1. STIVARGA [Suspect]
     Active Substance: REGORAFENIB
     Indication: HEPATOCELLULAR CARCINOMA
     Dosage: 160 MG, QD, 3 WEEKS ON/ 1 WEEK OFF
     Dates: start: 20161109, end: 20170501

REACTIONS (7)
  - Off label use [None]
  - Cerebral haemorrhage [Unknown]
  - Product use in unapproved indication [None]
  - Metastases to spine [Unknown]
  - Cancer pain [Unknown]
  - Seizure [Unknown]
  - Diarrhoea [Unknown]

NARRATIVE: CASE EVENT DATE: 201612
